FAERS Safety Report 8798985 (Version 1)
Quarter: 2012Q4

REPORT INFORMATION
  Report Type: Spontaneous
  Country: US (occurrence: None)
  Receive Date: 20120914
  Receipt Date: 20120914
  Transmission Date: 20130627
  Serious: Yes (Life-Threatening)
  Sender: FDA-Public Use
  Company Number: 1409729

PATIENT

DRUGS (2)
  1. EPINEPHRINE [Suspect]
     Dates: start: 20120824
  2. NORADRENALINE [Suspect]
     Dates: start: 20120824

REACTIONS (1)
  - Blood pressure decreased [None]
